FAERS Safety Report 5674797-7 (Version None)
Quarter: 2008Q1

REPORT INFORMATION
  Report Type: 
  Country: None (occurrence: None)
  Receive Date: 20080319
  Receipt Date: 20080319
  Transmission Date: 20080703
  Serious: No
  Sender: FDA-Public Use
  Company Number: None

PATIENT
  Sex: Female
  Weight: 61.9 kg

DRUGS (3)
  1. MITOMYCIN [Suspect]
     Indication: COLON CANCER
     Dosage: 7 MG/M2  Q 4 WEEKS  IV
     Route: 042
     Dates: start: 20060928, end: 20060928
  2. IRINOTECAN HCL [Suspect]
     Dosage: 110 MG/M2  Q 4 WEEKS  IV
     Route: 042
     Dates: start: 20060928, end: 20060928
  3. CETUXIMAB  250MG/M2, WEEKLY, IV [Suspect]
     Indication: COLON CANCER

REACTIONS (1)
  - RESPIRATORY DISTRESS [None]
